FAERS Safety Report 5952118-X (Version None)
Quarter: 2008Q4

REPORT INFORMATION
  Report Type: 
  Country: None (occurrence: None)
  Receive Date: 20081113
  Receipt Date: 20080507
  Transmission Date: 20090506
  Serious: No
  Sender: FDA-Public Use
  Company Number: A0726804A

PATIENT

DRUGS (1)
  1. CARVEDILOL [Suspect]
     Route: 048

REACTIONS (3)
  - DYSPNOEA [None]
  - PAIN IN EXTREMITY [None]
  - PERIPHERAL COLDNESS [None]
